FAERS Safety Report 10846815 (Version 2)
Quarter: 2015Q3

REPORT INFORMATION
  Report Type: Spontaneous
  Country: FR (occurrence: FR)
  Receive Date: 20150220
  Receipt Date: 20150910
  Transmission Date: 20151125
  Serious: Yes (Hospitalization)
  Sender: FDA-Public Use
  Company Number: FR-ABBVIE-15K-056-1346651-00

PATIENT
  Sex: Female

DRUGS (3)
  1. HUMIRA [Suspect]
     Active Substance: ADALIMUMAB
     Indication: PRODUCT USED FOR UNKNOWN INDICATION
     Route: 058
     Dates: start: 20140318, end: 201406
  2. IMUREL [Suspect]
     Active Substance: AZATHIOPRINE SODIUM
     Indication: OCULAR MYASTHENIA
     Route: 048
     Dates: start: 201410
  3. ENBREL [Suspect]
     Active Substance: ETANERCEPT
     Indication: PRODUCT USED FOR UNKNOWN INDICATION
     Route: 058
     Dates: start: 201107, end: 201110

REACTIONS (5)
  - Dyspnoea [Unknown]
  - Ocular myasthenia [Recovered/Resolved with Sequelae]
  - Erythema nodosum [Unknown]
  - Antiacetylcholine receptor antibody positive [Unknown]
  - Pulmonary sarcoidosis [Recovered/Resolved with Sequelae]

NARRATIVE: CASE EVENT DATE: 2014
